FAERS Safety Report 21053767 (Version 1)
Quarter: 2022Q3

REPORT INFORMATION
  Report Type: Spontaneous
  Country: US (occurrence: None)
  Receive Date: 20220707
  Receipt Date: 20220707
  Transmission Date: 20221027
  Serious: Yes (Death, Hospitalization)
  Sender: FDA-Public Use
  Company Number: None

PATIENT
  Age: 71 Year
  Sex: Female
  Weight: 56.2 kg

DRUGS (2)
  1. FOSTAMATINIB [Suspect]
     Active Substance: FOSTAMATINIB
     Indication: Fallopian tube cancer stage III
     Dosage: FREQUENCY : TWICE A DAY;?
     Route: 048
     Dates: start: 20220616, end: 20220701
  2. PACLITAXEL [Suspect]
     Active Substance: PACLITAXEL
     Indication: Fallopian tube cancer stage III
     Dosage: FREQUENCY : WEEKLY;?
     Route: 042
     Dates: start: 20220616, end: 20220629

REACTIONS (9)
  - Vomiting [None]
  - Diarrhoea [None]
  - Pain in extremity [None]
  - Neutropenia [None]
  - Necrotising soft tissue infection [None]
  - Debridement [None]
  - Troponin increased [None]
  - Multiple organ dysfunction syndrome [None]
  - Blood lactic acid increased [None]

NARRATIVE: CASE EVENT DATE: 20220701
